FAERS Safety Report 5649025-9 (Version None)
Quarter: 2008Q1

REPORT INFORMATION
  Report Type: 
  Country: None (occurrence: None)
  Receive Date: 20080229
  Receipt Date: 20080222
  Transmission Date: 20080703
  Serious: Yes (Life-Threatening)
  Sender: FDA-Public Use
  Company Number: 2008JP000919

PATIENT
  Age: 69 Year
  Sex: Female
  Weight: 53 kg

DRUGS (10)
  1. TACROLIMUS [Suspect]
     Indication: INTERSTITIAL LUNG DISEASE
     Dosage: 2 MG, BID, ORAL
     Route: 048
     Dates: start: 20080115, end: 20080212
  2. PREDNISOLONE [Suspect]
     Indication: INTERSTITIAL LUNG DISEASE
     Dosage: 55 MG, ORAL
     Route: 048
     Dates: start: 20080109
  3. NEORAL [Suspect]
     Indication: INTERSTITIAL LUNG DISEASE
     Dosage: 75 MG, BID, ORAL
     Route: 048
     Dates: start: 20080212
  4. METHYLPREDNISOLONE [Suspect]
     Indication: INTERSTITIAL LUNG DISEASE
     Dosage: 1 G
     Dates: start: 20080212, end: 20080214
  5. SUCRALFATE [Concomitant]
  6. SLOW-K [Concomitant]
  7. BAKTAR (SULFAMETHOXAZOLE, TRIMETHOPRIM) [Concomitant]
  8. MARZULENE (SODIUM GUALENATE) [Concomitant]
  9. CANDESARTAN CILEXETIL [Concomitant]
  10. AMLODIPINE BESYLATE [Concomitant]

REACTIONS (3)
  - INTERSTITIAL LUNG DISEASE [None]
  - PNEUMONIA CYTOMEGALOVIRAL [None]
  - PULMONARY FIBROSIS [None]
